FAERS Safety Report 13488652 (Version 1)
Quarter: 2017Q2

REPORT INFORMATION
  Report Type: Spontaneous
  Country: GB (occurrence: GB)
  Receive Date: 20170427
  Receipt Date: 20170427
  Transmission Date: 20170830
  Serious: Yes (Other)
  Sender: FDA-Public Use
  Company Number: GB-AUROBINDO-AUR-APL-2017-32914

PATIENT
  Age: 46 Year
  Sex: Female
  Weight: 50 kg

DRUGS (2)
  1. NUROFEN EXPRESS                    /00109201/ [Concomitant]
     Indication: PAIN
     Dosage: ON THE FIRST DAY OF TAKING METRONIDAZOLE I TOOK 2X NUROFEN EXPRESS
     Dates: start: 20170403
  2. METRONIDAZOLE. [Suspect]
     Active Substance: METRONIDAZOLE
     Indication: TOOTH INFECTION
     Dosage: FOR 3 DAYS
     Route: 048
     Dates: start: 20170403, end: 20170405

REACTIONS (4)
  - Coating in mouth [Unknown]
  - Nausea [Unknown]
  - Burning sensation [Unknown]
  - Dysgeusia [Unknown]
